FAERS Safety Report 23541395 (Version 3)
Quarter: 2024Q1

REPORT INFORMATION
  Report Type: Spontaneous
  Country: ES (occurrence: ES)
  Receive Date: 20240219
  Receipt Date: 20240221
  Transmission Date: 20240410
  Serious: Yes (Death, Life-Threatening, Hospitalization, Other)
  Sender: FDA-Public Use
  Company Number: ES-009507513-2402ESP004748

PATIENT
  Age: 68 Year
  Sex: Male
  Weight: 73 kg

DRUGS (2)
  1. KEYTRUDA [Suspect]
     Active Substance: PEMBROLIZUMAB
     Indication: Lung adenocarcinoma stage IV
     Dosage: 2 MILLIGRAM/KILOGRAM
     Route: 042
     Dates: start: 20240115
  2. SHINGRIX [Suspect]
     Active Substance: RECOMBINANT VARICELLA ZOSTER VIRUS (VZV) GLYCOPROTEIN E
     Indication: Prophylaxis
     Route: 058

REACTIONS (13)
  - Asthenia [Fatal]
  - Dyspnoea [Fatal]
  - Pyrexia [Fatal]
  - Respiratory failure [Fatal]
  - Pneumonitis [Unknown]
  - Malignant neoplasm progression [Unknown]
  - Tumour hyperprogression [Unknown]
  - Ascites [Unknown]
  - General physical health deterioration [Unknown]
  - C-reactive protein abnormal [Unknown]
  - Atelectasis [Unknown]
  - Leukocytosis [Unknown]
  - Neutrophilia [Unknown]

NARRATIVE: CASE EVENT DATE: 20240201
